FAERS Safety Report 23432022 (Version 1)
Quarter: 2024Q1

REPORT INFORMATION
  Report Type: Report from Study
  Country: CN (occurrence: CN)
  Receive Date: 20240123
  Receipt Date: 20240123
  Transmission Date: 20240410
  Serious: Yes (Hospitalization)
  Sender: FDA-Public Use
  Company Number: CN-GTI-000104

PATIENT
  Age: 61 Year
  Sex: Female

DRUGS (3)
  1. PREDNISONE [Suspect]
     Active Substance: PREDNISONE
     Indication: Still^s disease
     Dosage: MORE THAN 7.5 MG PER DAY
     Route: 048
  2. METHOTREXATE [Suspect]
     Active Substance: METHOTREXATE
     Indication: Still^s disease
     Route: 065
  3. HYDROXYCHLOROQUINE [Suspect]
     Active Substance: HYDROXYCHLOROQUINE
     Indication: Still^s disease
     Route: 065

REACTIONS (6)
  - COVID-19 [Unknown]
  - Still^s disease [Unknown]
  - Condition aggravated [Unknown]
  - Pyrexia [Unknown]
  - Oropharyngeal pain [Unknown]
  - Myalgia [Unknown]
